FAERS Safety Report 7292433-3 (Version None)
Quarter: 2011Q1

REPORT INFORMATION
  Report Type: 
  Country: None (occurrence: None)
  Receive Date: 20110215
  Receipt Date: 20110209
  Transmission Date: 20110831
  Serious: No
  Sender: FDA-Public Use
  Company Number: US-PFIZER INC-2011029855

PATIENT

DRUGS (1)
  1. ZMAX [Suspect]
     Indication: CHLAMYDIAL INFECTION
     Dosage: 1 G, UNK
     Dates: end: 20110209

REACTIONS (1)
  - VOMITING [None]
